FAERS Safety Report 13448462 (Version 1)
Quarter: 2017Q2

REPORT INFORMATION
  Report Type: Report from Study
  Country: ES (occurrence: ES)
  Receive Date: 20170417
  Receipt Date: 20170417
  Transmission Date: 20170830
  Serious: Yes (Other)
  Sender: FDA-Public Use
  Company Number: ES-TEVA-759065ISR

PATIENT
  Age: 39 Year
  Sex: Female

DRUGS (3)
  1. COPAXONE [Suspect]
     Active Substance: GLATIRAMER ACETATE
     Indication: MULTIPLE SCLEROSIS
     Dosage: 20 MILLIGRAM/MILLILITERS DAILY; COPAXONE 20MG/ML
     Route: 058
     Dates: start: 20091201
  2. COPAXONE [Suspect]
     Active Substance: GLATIRAMER ACETATE
     Dosage: 17.1429 MG/ML DAILY; COPAXONE 40MG/ML
     Route: 058
     Dates: start: 20151015
  3. COPAXONE [Suspect]
     Active Substance: GLATIRAMER ACETATE
     Indication: MULTIPLE SCLEROSIS
     Dosage: 17.1429 MILLIGRAM/MILLILITERS DAILY;
     Route: 058
     Dates: start: 20151015

REACTIONS (6)
  - Product use issue [Unknown]
  - Dry skin [Recovering/Resolving]
  - Lipoatrophy [Recovering/Resolving]
  - Deformity [Recovering/Resolving]
  - Lipodystrophy acquired [Recovering/Resolving]
  - Skin striae [Recovering/Resolving]

NARRATIVE: CASE EVENT DATE: 200912
